FAERS Safety Report 16052133 (Version 4)
Quarter: 2020Q2

REPORT INFORMATION
  Report Type: Spontaneous
  Country: US (occurrence: US)
  Receive Date: 20190308
  Receipt Date: 20200403
  Transmission Date: 20200713
  Serious: Yes (Hospitalization, Other)
  Sender: FDA-Public Use
  Company Number: US-SA-2019SA064318

PATIENT
  Age: 31 Year
  Sex: Female

DRUGS (3)
  1. DUPIXENT [Suspect]
     Active Substance: DUPILUMAB
     Indication: OSTEOPOROSIS
     Dosage: 300 MG, QOW
     Route: 058
     Dates: start: 201901
  2. DUPIXENT [Suspect]
     Active Substance: DUPILUMAB
     Indication: DERMATITIS ATOPIC
     Dosage: 600 MG
     Route: 058
     Dates: start: 201901, end: 201901
  3. FORTEO [Concomitant]
     Active Substance: TERIPARATIDE

REACTIONS (6)
  - Product use in unapproved indication [Unknown]
  - Product storage error [Unknown]
  - Suicidal ideation [Unknown]
  - Extra dose administered [Unknown]
  - Product prescribing error [Unknown]
  - Mental disorder [Unknown]

NARRATIVE: CASE EVENT DATE: 202003
